FAERS Safety Report 13030833 (Version 1)
Quarter: 2016Q4

REPORT INFORMATION
  Report Type: Spontaneous
  Country: US (occurrence: US)
  Receive Date: 20161215
  Receipt Date: 20161215
  Transmission Date: 20170207
  Serious: No
  Sender: FDA-Public Use
  Company Number: US-BAUSCH-BL-2016-023425

PATIENT
  Sex: Female

DRUGS (2)
  1. APRISO [Suspect]
     Active Substance: MESALAMINE
     Indication: IRRITABLE BOWEL SYNDROME
     Route: 065
  2. APRISO [Suspect]
     Active Substance: MESALAMINE
     Indication: COLITIS MICROSCOPIC

REACTIONS (5)
  - Frequent bowel movements [Unknown]
  - Flatulence [Unknown]
  - Incorrect dose administered [Unknown]
  - Dyspepsia [Unknown]
  - Abdominal pain [Unknown]
